FAERS Safety Report 24078329 (Version 3)
Quarter: 2024Q3

REPORT INFORMATION
  Report Type: Spontaneous
  Country: AU (occurrence: AU)
  Receive Date: 20240711
  Receipt Date: 20240926
  Transmission Date: 20241017
  Serious: Yes (Other)
  Sender: ROCHE
  Company Number: AU-ROCHE-10000007537

PATIENT
  Sex: Female

DRUGS (1)
  1. FARICIMAB [Suspect]
     Active Substance: FARICIMAB
     Indication: Product used for unknown indication
     Route: 050

REACTIONS (2)
  - Retinal occlusive vasculitis [Unknown]
  - Chronic kidney disease [Unknown]
